FAERS Safety Report 8885629 (Version 2)
Quarter: 2012Q4

REPORT INFORMATION
  Report Type: Report from Study
  Country: AR (occurrence: AR)
  Receive Date: 20121102
  Receipt Date: 20121212
  Transmission Date: 20130627
  Serious: Yes (Other)
  Sender: FDA-Public Use
  Company Number: AR-ABBOTT-12P-007-1001936-00

PATIENT
  Age: 78 Year
  Sex: Male

DRUGS (1)
  1. HUMIRA [Suspect]
     Indication: PSORIATIC ARTHROPATHY
     Route: 058
     Dates: start: 20120321, end: 201210

REACTIONS (3)
  - Haemorrhage [Not Recovered/Not Resolved]
  - Gastrointestinal infection [Unknown]
  - Pruritus generalised [Not Recovered/Not Resolved]
